FAERS Safety Report 20129332 (Version 1)
Quarter: 2021Q4

REPORT INFORMATION
  Report Type: Spontaneous
  Country: US (occurrence: US)
  Receive Date: 20211130
  Receipt Date: 20211130
  Transmission Date: 20220304
  Serious: No
  Sender: FDA-Public Use
  Company Number: US-AMGEN-USASP2021187507

PATIENT
  Age: 79 Year
  Sex: Male

DRUGS (4)
  1. ENBREL [Suspect]
     Active Substance: ETANERCEPT
     Indication: Ankylosing spondylitis
     Dosage: 50 MILLIGRAM, QWK
     Route: 058
  2. LEVOFLOXACIN [Concomitant]
     Active Substance: LEVOFLOXACIN
     Dosage: UNK
  3. PREDNISONE [Concomitant]
     Active Substance: PREDNISONE
     Dosage: UNK
  4. ZOLPIDEM [Concomitant]
     Active Substance: ZOLPIDEM TARTRATE
     Dosage: 10 MILLIGRAM

REACTIONS (1)
  - Product dose omission issue [Unknown]
